FAERS Safety Report 5032003-0 (Version None)
Quarter: 2006Q2

REPORT INFORMATION
  Report Type: 
  Country: None (occurrence: None)
  Receive Date: 20060619
  Receipt Date: 20060606
  Transmission Date: 20061013
  Serious: Yes (Death, Hospitalization)
  Sender: FDA-Public Use
  Company Number: HQWYE633602FEB06

PATIENT
  Age: 69 Year
  Sex: Male

DRUGS (7)
  1. MYLOTARG [Suspect]
     Indication: ACUTE MYELOID LEUKAEMIA RECURRENT
     Dosage: 9 MG/M^2 PER 1 DAY, INTRAVENOUS DRIP
     Route: 041
     Dates: start: 20051115, end: 20051115
  2. AMLODIPINE BESYLATE [Concomitant]
  3. LONGES (LISINOPRIL) [Concomitant]
  4. MUCOSTA (REBAMIPIDE) [Concomitant]
  5. CHLORMADINONE ACETATE TAB [Concomitant]
  6. HUMALOG [Concomitant]
  7. NOVOLIN N [Concomitant]

REACTIONS (9)
  - ANAEMIA [None]
  - CONDITION AGGRAVATED [None]
  - DISEASE PROGRESSION [None]
  - HAEMORRHAGE [None]
  - HYPOCALCAEMIA [None]
  - NEUTROPHIL COUNT DECREASED [None]
  - ORAL INTAKE REDUCED [None]
  - PLATELET COUNT DECREASED [None]
  - PYREXIA [None]
